FAERS Safety Report 10969077 (Version 4)
Quarter: 2015Q2

REPORT INFORMATION
  Report Type: Spontaneous
  Country: US (occurrence: US)
  Receive Date: 20150331
  Receipt Date: 20150626
  Transmission Date: 20150821
  Serious: Yes (Other)
  Sender: FDA-Public Use
  Company Number: US-PFIZER INC-2013254869

PATIENT
  Age: 89 Year
  Sex: Female

DRUGS (1)
  1. LYRICA [Suspect]
     Active Substance: PREGABALIN
     Indication: BACK PAIN
     Dosage: 50 MG, 2X/DAY
     Dates: start: 201308

REACTIONS (5)
  - Dyspnoea [Unknown]
  - Dementia [Unknown]
  - Anxiety [Unknown]
  - Irritability [Unknown]
  - Personality disorder [Unknown]
